FAERS Safety Report 6177667-3 (Version None)
Quarter: 2009Q2

REPORT INFORMATION
  Report Type: 
  Country: None (occurrence: None)
  Receive Date: 20090504
  Receipt Date: 20090205
  Transmission Date: 20091009
  Serious: Yes (Death, Other)
  Sender: FDA-Public Use
  Company Number: PHHY2009JP03888

PATIENT
  Sex: Female
  Weight: 32 kg

DRUGS (16)
  1. EXJADE [Suspect]
     Indication: IRON OVERLOAD
     Dosage: 625 MG, QD
     Route: 048
     Dates: start: 20080703, end: 20080731
  2. EXJADE [Suspect]
     Dosage: 500 MG/DAY
     Route: 048
     Dates: start: 20080911, end: 20081117
  3. MYSLEE [Concomitant]
     Dosage: 5 MG
     Route: 048
     Dates: start: 20080703, end: 20081117
  4. LORAMET [Concomitant]
     Dosage: 3 MG
     Route: 048
     Dates: start: 20080703, end: 20081117
  5. FAMOGAST [Concomitant]
     Dosage: 40 MG
     Route: 048
     Dates: start: 20080703, end: 20081117
  6. BIOFERMIN R [Concomitant]
     Dosage: 2.5 G
     Route: 048
     Dates: start: 20080703, end: 20081117
  7. PRIMOBOLAN [Concomitant]
     Indication: MYELODYSPLASTIC SYNDROME
     Dosage: 15 MG
     Route: 048
     Dates: start: 20080703, end: 20081117
  8. PREDNISOLONE [Concomitant]
     Indication: MYELODYSPLASTIC SYNDROME
     Dosage: 10 MG
     Route: 048
     Dates: start: 20080703, end: 20081117
  9. MAGLAX [Concomitant]
     Dosage: 990 MG
     Route: 048
     Dates: start: 20080703, end: 20081117
  10. SOLITA T [Concomitant]
     Dosage: 550 ML
     Route: 048
     Dates: start: 20080731, end: 20080801
  11. ASCORBIC ACID [Concomitant]
     Dosage: 500 MG
     Route: 042
     Dates: start: 20080731, end: 20080801
  12. ADONA [Concomitant]
     Dosage: UNK
     Route: 042
     Dates: start: 20081128
  13. TRANSAMIN [Concomitant]
     Dosage: UNK
     Route: 042
     Dates: start: 20081128
  14. MEROPEN [Concomitant]
     Dosage: 1.0 G
     Route: 042
     Dates: start: 20081130
  15. ISOTONIC SOLUTIONS [Concomitant]
     Dosage: 100 ML
     Route: 042
     Dates: start: 20081130
  16. ATARAX [Concomitant]
     Dosage: 1 DF
     Route: 042
     Dates: start: 20081202

REACTIONS (5)
  - ANOREXIA [None]
  - ARRHYTHMIA [None]
  - BLOOD CREATININE INCREASED [None]
  - FALL [None]
  - SUBARACHNOID HAEMORRHAGE [None]
